FAERS Safety Report 16543057 (Version 1)
Quarter: 2019Q3

REPORT INFORMATION
  Report Type: Spontaneous
  Country: CA (occurrence: CA)
  Receive Date: 20190709
  Receipt Date: 20190709
  Transmission Date: 20191004
  Serious: Yes (Other)
  Sender: FDA-Public Use
  Company Number: CA-AUROBINDO-AUR-APL-2019-037775

PATIENT

DRUGS (2)
  1. SERTRALINE [Suspect]
     Active Substance: SERTRALINE HYDROCHLORIDE
     Indication: DEPRESSION
     Dosage: 75 MILLIGRAM, UNK
     Route: 065
  2. ZOPICLONE [Suspect]
     Active Substance: ZOPICLONE
     Indication: INSOMNIA
     Dosage: UNK
     Route: 065

REACTIONS (12)
  - Fatigue [Recovered/Resolved]
  - Malaise [Recovered/Resolved]
  - Myalgia [Recovered/Resolved]
  - Pruritus [Recovered/Resolved]
  - Bedridden [Recovered/Resolved]
  - Influenza like illness [Recovered/Resolved]
  - Depression [Recovered/Resolved]
  - Dry mouth [Recovered/Resolved]
  - Weight decreased [Recovered/Resolved]
  - Arthralgia [Recovered/Resolved]
  - Pain [Recovered/Resolved]
  - Mental disability [Recovered/Resolved]
